FAERS Safety Report 9185852 (Version 2)
Quarter: 2013Q2

REPORT INFORMATION
  Report Type: Report from Study
  Country: DE (occurrence: DE)
  Receive Date: 20130325
  Receipt Date: 20130401
  Transmission Date: 20140414
  Serious: Yes (Other)
  Sender: FDA-Public Use
  Company Number: DE-GILEAD-2013-0071858

PATIENT
  Age: 29 Year
  Sex: Male

DRUGS (2)
  1. TENOFOVIR DISOPROXIL FUMARATE [Suspect]
     Indication: HEPATITIS D
     Dosage: 300 MG, QD
     Route: 048
     Dates: start: 20091030, end: 20100924
  2. PEGINTERFERON ALFA-2A [Suspect]
     Indication: HEPATITIS D
     Dosage: 180 ?G, Q1WK
     Route: 058
     Dates: start: 20090130, end: 20100923

REACTIONS (1)
  - Thrombosis [Not Recovered/Not Resolved]
